FAERS Safety Report 19096652 (Version 1)
Quarter: 2021Q2

REPORT INFORMATION
  Report Type: Spontaneous
  Country: US (occurrence: US)
  Receive Date: 20210405
  Receipt Date: 20210405
  Transmission Date: 20210717
  Serious: Yes (Hospitalization)
  Sender: FDA-Public Use
  Company Number: None

PATIENT
  Sex: Female

DRUGS (17)
  1. NYSTATIN. [Concomitant]
     Active Substance: NYSTATIN
  2. VITAMIN D [Concomitant]
     Active Substance: VITAMIN D NOS
  3. PREDNISONE. [Concomitant]
     Active Substance: PREDNISONE
  4. ROSUVASTATIN. [Concomitant]
     Active Substance: ROSUVASTATIN
  5. TRIAMTERENE AND HYDROCHLOROTHIAZIDE [Concomitant]
     Active Substance: HYDROCHLOROTHIAZIDE\TRIAMTERENE
  6. FLUOXETINE [Concomitant]
     Active Substance: FLUOXETINE HYDROCHLORIDE
  7. CLONAZEPAM. [Concomitant]
     Active Substance: CLONAZEPAM
  8. PRAMIPEXOLE. [Concomitant]
     Active Substance: PRAMIPEXOLE
  9. XELJANZ [Suspect]
     Active Substance: TOFACITINIB CITRATE
     Indication: RHEUMATOID ARTHRITIS
     Route: 048
     Dates: start: 20180119
  10. FUROSEMIDE. [Concomitant]
     Active Substance: FUROSEMIDE
  11. PROPRANOLOL [Concomitant]
     Active Substance: PROPRANOLOL HYDROCHLORIDE
  12. ALLOPURINOL. [Concomitant]
     Active Substance: ALLOPURINOL
  13. KLOR?CON [Concomitant]
     Active Substance: POTASSIUM CHLORIDE
  14. OMEPRAZOLE. [Concomitant]
     Active Substance: OMEPRAZOLE
  15. HYDROCODONE BITARTRATE AND ACETAMINOPHEN [Concomitant]
     Active Substance: ACETAMINOPHEN\HYDROCODONE BITARTRATE
  16. MORPHINE [Concomitant]
     Active Substance: MORPHINE
  17. LEVOTHYROXINE. [Concomitant]
     Active Substance: LEVOTHYROXINE

REACTIONS (2)
  - Foot operation [None]
  - Therapy interrupted [None]
